FAERS Safety Report 6529314-6 (Version None)
Quarter: 2010Q1

REPORT INFORMATION
  Report Type: 
  Country: None (occurrence: None)
  Receive Date: 20100107
  Receipt Date: 20100104
  Transmission Date: 20100710
  Serious: Yes (Death, Other)
  Sender: FDA-Public Use
  Company Number: PHMT2005CA00837

PATIENT
  Sex: Male

DRUGS (3)
  1. CLOZARIL [Suspect]
     Indication: SCHIZOPHRENIA
     Dosage: UNK
     Dates: start: 20050913
  2. CHEMOTHERAPEUTICS,OTHER [Concomitant]
     Dosage: UNK
  3. PROCYTOX [Concomitant]
     Dosage: UNK
     Route: 048
     Dates: start: 20081103

REACTIONS (2)
  - HAEMATOLOGY TEST ABNORMAL [None]
  - NEOPLASM MALIGNANT [None]
